FAERS Safety Report 17964873 (Version 1)
Quarter: 2020Q2

REPORT INFORMATION
  Report Type: Other
  Country: ES (occurrence: ES)
  Receive Date: 20200630
  Receipt Date: 20200630
  Transmission Date: 20200714
  Serious: Yes (Death, Hospitalization, Other)
  Sender: FDA-Public Use
  Company Number: ES-DEXPHARM-20200551

PATIENT
  Age: 95 Year
  Sex: Female

DRUGS (15)
  1. PAROXETINE. [Suspect]
     Active Substance: PAROXETINE
     Indication: PSEUDODEMENTIA
  2. ALPRAZOLAM. [Suspect]
     Active Substance: ALPRAZOLAM
     Indication: PSEUDODEMENTIA
  3. LORAZEPAM. [Suspect]
     Active Substance: LORAZEPAM
     Indication: DELIRIUM
  4. OMEPRAZOLE. [Interacting]
     Active Substance: OMEPRAZOLE
  5. FUROSEMIDE. [Suspect]
     Active Substance: FUROSEMIDE
  6. LOSARTAN. [Suspect]
     Active Substance: LOSARTAN
  7. RISPERIDONE. [Interacting]
     Active Substance: RISPERIDONE
     Indication: PSEUDODEMENTIA
  8. TRAMADOL/PARACETAMOL [Suspect]
     Active Substance: ACETAMINOPHEN\TRAMADOL
     Dosage: TRAMADOL/PARACETAMOL 37.5/325MG AT BREAKFAST
  9. AMLODIPINE [Suspect]
     Active Substance: AMLODIPINE BESYLATE
  10. ACENOCOUMAROL [Suspect]
     Active Substance: ACENOCOUMAROL
  11. QUETIAPINE. [Suspect]
     Active Substance: QUETIAPINE
     Indication: DELIRIUM
  12. TRAZODONE [Suspect]
     Active Substance: TRAZODONE HYDROCHLORIDE
     Indication: PSEUDODEMENTIA
  13. SPIRONOLACTONE. [Suspect]
     Active Substance: SPIRONOLACTONE
  14. SERTRALINE [Interacting]
     Active Substance: SERTRALINE HYDROCHLORIDE
  15. SIMVASTATIN. [Suspect]
     Active Substance: SIMVASTATIN

REACTIONS (2)
  - Drug interaction [Fatal]
  - Serotonin syndrome [Fatal]
